FAERS Safety Report 6641307-7 (Version None)
Quarter: 2010Q1

REPORT INFORMATION
  Report Type: 
  Country: None (occurrence: None)
  Receive Date: 20100303
  Receipt Date: 20090616
  Transmission Date: 20100710
  Serious: No
  Sender: FDA-Public Use
  Company Number: 288581

PATIENT
  Age: 72 Year
  Sex: Female

DRUGS (2)
  1. NOVOLIN 70/30 [Suspect]
     Indication: DIABETES MELLITUS
     Dosage: SUBCUTANEOUS
     Route: 058
     Dates: end: 20090414
  2. NOVOLIN 70/30 [Suspect]
     Indication: DIABETES MELLITUS
     Dosage: SUBCUTANEOUS
     Route: 058
     Dates: start: 20090415

REACTIONS (5)
  - ASTHMA [None]
  - ERYTHEMA [None]
  - PRURITUS [None]
  - RASH [None]
  - RASH PAPULAR [None]
